FAERS Safety Report 25653324 (Version 3)
Quarter: 2025Q3

REPORT INFORMATION
  Report Type: Spontaneous
  Country: CN (occurrence: CN)
  Receive Date: 20250807
  Receipt Date: 20250814
  Transmission Date: 20251021
  Serious: Yes (Death, Life-Threatening, Other)
  Sender: SANOFI AVENTIS
  Company Number: CN-MLMSERVICE-20250724-PI589895-00175-1

PATIENT
  Age: 61 Year
  Sex: Male

DRUGS (2)
  1. HEPARIN [Suspect]
     Active Substance: HEPARIN SODIUM
  2. ENOXAPARIN SODIUM [Suspect]
     Active Substance: ENOXAPARIN SODIUM
     Indication: Deep vein thrombosis
     Route: 058

REACTIONS (13)
  - Pulmonary embolism [Fatal]
  - Myocardial injury [Fatal]
  - Dyspnoea [Fatal]
  - Chest pain [Fatal]
  - Respiratory distress [Fatal]
  - Nausea [Fatal]
  - Vomiting [Fatal]
  - Chest discomfort [Fatal]
  - Heparin-induced thrombocytopenia [Fatal]
  - Condition aggravated [Fatal]
  - Thrombocytopenia [Fatal]
  - Deep vein thrombosis [Unknown]
  - Device related thrombosis [Unknown]
